FAERS Safety Report 8888494 (Version 3)
Quarter: 2013Q1

REPORT INFORMATION
  Report Type: Report from Study
  Country: JP (occurrence: JP)
  Receive Date: 20121106
  Receipt Date: 20130204
  Transmission Date: 20140127
  Serious: Yes (Other)
  Sender: FDA-Public Use
  Company Number: JP-VERTEX PHARMACEUTICAL INC.-2012-024020

PATIENT
  Age: 64 Year
  Sex: Male

DRUGS (11)
  1. VX-950 (TELAPREVIR) [Suspect]
     Indication: CHRONIC HEPATITIS C
     Dosage: 2250 MG, QD
     Route: 048
     Dates: start: 20120424, end: 20120426
  2. VX-950 (TELAPREVIR) [Suspect]
     Dosage: 1500 MG, QD
     Route: 048
     Dates: start: 20120427, end: 20120717
  3. PEGINTRON [Suspect]
     Indication: CHRONIC HEPATITIS C
     Dosage: 1.23 ?G/KG, QW
     Route: 058
     Dates: start: 20120424
  4. PEGINTRON [Suspect]
     Dosage: 1.33 ?G/KG, QW
     Route: 058
     Dates: end: 20120612
  5. PEGINTRON [Suspect]
     Dosage: 1.07 ?G/KG, QW
     Route: 058
     Dates: start: 20120619, end: 20121009
  6. REBETOL [Suspect]
     Indication: CHRONIC HEPATITIS C
     Dosage: 800 MG, QD
     Route: 048
     Dates: start: 20120424, end: 20120514
  7. REBETOL [Suspect]
     Dosage: 600 MG, QD
     Route: 048
     Dates: start: 20120515, end: 20121009
  8. URSO [Concomitant]
     Dosage: 300 MG, QD
     Route: 048
  9. SEVEN E.P [Concomitant]
     Dosage: 3 DF, QD
     Route: 048
     Dates: end: 20120813
  10. NIVADIL [Concomitant]
     Dosage: 8 MG, QD
     Route: 048
  11. POLITOSE [Concomitant]
     Dosage: 3 DF, QD
     Route: 048
     Dates: start: 20120814

REACTIONS (2)
  - White blood cell count decreased [Recovered/Resolved]
  - White blood cell count decreased [Not Recovered/Not Resolved]
